FAERS Safety Report 6370893-X (Version None)
Quarter: 2009Q3

REPORT INFORMATION
  Report Type: 
  Country: None (occurrence: None)
  Receive Date: 20090923
  Receipt Date: 20070523
  Transmission Date: 20100115
  Serious: No
  Sender: FDA-Public Use
  Company Number: US-ASTRAZENECA-2006UW22924

PATIENT
  Age: 13 Year
  Sex: Female
  Weight: 69.4 kg

DRUGS (19)
  1. SEROQUEL [Suspect]
     Indication: DEPRESSION
     Route: 048
     Dates: start: 20020101, end: 20060101
  2. SEROQUEL [Suspect]
     Indication: PSYCHOTIC DISORDER
     Route: 048
     Dates: start: 20020101, end: 20060101
  3. SEROQUEL [Suspect]
     Indication: AGGRESSION
     Route: 048
     Dates: start: 20020101, end: 20060101
  4. SEROQUEL [Suspect]
     Indication: AFFECTIVE DISORDER
     Route: 048
     Dates: start: 20020101, end: 20060101
  5. SEROQUEL [Suspect]
     Dosage: 50-200 MG
     Route: 048
     Dates: start: 20041103
  6. SEROQUEL [Suspect]
     Dosage: 50-200 MG
     Route: 048
     Dates: start: 20041103
  7. SEROQUEL [Suspect]
     Dosage: 50-200 MG
     Route: 048
     Dates: start: 20041103
  8. SEROQUEL [Suspect]
     Dosage: 50-200 MG
     Route: 048
     Dates: start: 20041103
  9. RISPERDAL [Concomitant]
     Dates: start: 20020101
  10. TOPAMAX [Concomitant]
     Indication: AFFECTIVE DISORDER
  11. PROZAC [Concomitant]
     Indication: DEPRESSION
     Route: 048
  12. PROZAC [Concomitant]
     Indication: ANXIETY
     Route: 048
  13. PROZAC [Concomitant]
     Indication: PHOBIA
     Route: 048
  14. PROZAC [Concomitant]
     Indication: SELF ESTEEM INFLATED
     Route: 048
  15. COGENTIN [Concomitant]
     Indication: EXTRAPYRAMIDAL DISORDER
     Route: 048
  16. LEXAPRO [Concomitant]
     Route: 048
  17. DEPAKOTE [Concomitant]
     Route: 048
  18. TYLENOL (CAPLET) [Concomitant]
     Route: 048
  19. IBUPROFEN [Concomitant]
     Route: 048

REACTIONS (5)
  - BLOOD GLUCOSE ABNORMAL [None]
  - BLOOD TRIGLYCERIDES INCREASED [None]
  - DIABETES MELLITUS [None]
  - GLUCOSE TOLERANCE IMPAIRED [None]
  - INSULIN RESISTANCE SYNDROME [None]
